FAERS Safety Report 13068741 (Version 4)
Quarter: 2017Q1

REPORT INFORMATION
  Report Type: Report from Study
  Country: US (occurrence: US)
  Receive Date: 20161228
  Receipt Date: 20170323
  Transmission Date: 20170428
  Serious: Yes (Hospitalization, Other)
  Sender: FDA-Public Use
  Company Number: US-JNJFOC-20161207575

PATIENT
  Age: 22 Year
  Sex: Male
  Weight: 63.5 kg

DRUGS (2)
  1. STELARA [Suspect]
     Active Substance: USTEKINUMAB
     Indication: PSORIASIS
     Route: 058
     Dates: start: 20161207, end: 201701
  2. MOTRIN [Concomitant]
     Active Substance: IBUPROFEN
     Route: 065

REACTIONS (9)
  - Seizure [Recovered/Resolved]
  - Influenza [Unknown]
  - Syringe issue [Unknown]
  - Abdominal distension [Recovered/Resolved]
  - Pyrexia [Unknown]
  - Abdominal pain upper [Recovered/Resolved]
  - Injection site swelling [Recovered/Resolved]
  - Syncope [Recovered/Resolved]
  - Injection site discomfort [Unknown]

NARRATIVE: CASE EVENT DATE: 201612
